FAERS Safety Report 7265926-2 (Version None)
Quarter: 2011Q1

REPORT INFORMATION
  Report Type: 
  Country: None (occurrence: None)
  Receive Date: 20110131
  Receipt Date: 20110127
  Transmission Date: 20110831
  Serious: Yes (Other)
  Sender: FDA-Public Use
  Company Number: D0070102A

PATIENT
  Sex: Male
  Weight: 90 kg

DRUGS (3)
  1. LAMICTAL [Suspect]
     Route: 048
     Dates: start: 20110127, end: 20110127
  2. SEROQUEL [Suspect]
     Dosage: 25MG SEE DOSAGE TEXT
     Route: 048
     Dates: start: 20110127, end: 20110127
  3. ZOPICLON [Suspect]
     Dosage: 7.5MG SEE DOSAGE TEXT
     Route: 048
     Dates: start: 20110127, end: 20110127

REACTIONS (2)
  - FATIGUE [None]
  - SUICIDE ATTEMPT [None]
